FAERS Safety Report 8233478-6 (Version None)
Quarter: 2012Q1

REPORT INFORMATION
  Report Type: 
  Country: None (occurrence: None)
  Receive Date: 20120307
  Receipt Date: 20110422
  Transmission Date: 20120608
  Serious: Yes (Hospitalization)
  Sender: FDA-Public Use
  Company Number: PHHY2011US36163

PATIENT
  Age: 27 Year
  Sex: Female

DRUGS (1)
  1. AFINITOR [Suspect]
     Indication: HODGKIN'S DISEASE
     Dosage: 10 MG, DAILY, ORAL
     Route: 048

REACTIONS (2)
  - CARDIOMYOPATHY [None]
  - VIRAL MYOCARDITIS [None]
